FAERS Safety Report 5085915-6 (Version None)
Quarter: 2006Q3

REPORT INFORMATION
  Report Type: 
  Country: None (occurrence: None)
  Receive Date: 20060817
  Receipt Date: 20060807
  Transmission Date: 20061208
  Serious: Yes (Other)
  Sender: FDA-Public Use
  Company Number: 2006096982

PATIENT
  Sex: Female

DRUGS (1)
  1. HYDROXYZINE HCL [Suspect]
     Indication: DRUG USE FOR UNKNOWN INDICATION
     Dosage: 100 MG (25 MG, 4 IN 1 D), ORAL
     Route: 048
     Dates: start: 20060101

REACTIONS (2)
  - DECREASED ACTIVITY [None]
  - EXFOLIATIVE RASH [None]
